FAERS Safety Report 9296488 (Version 1)
Quarter: 2013Q2

REPORT INFORMATION
  Report Type: Spontaneous
  Country: CN (occurrence: CN)
  Receive Date: 20130517
  Receipt Date: 20130517
  Transmission Date: 20140414
  Serious: Yes (Hospitalization)
  Sender: FDA-Public Use
  Company Number: CN-PFIZER INC-2013150348

PATIENT
  Age: 63 Year
  Sex: Male
  Weight: 50 kg

DRUGS (5)
  1. NORVASC [Suspect]
     Indication: HYPERTENSION
     Dosage: 5 MG, 1X/DAY
     Route: 048
     Dates: start: 20120603, end: 20120625
  2. AMINOPHENAZONE [Concomitant]
     Indication: BODY TEMPERATURE INCREASED
     Dosage: UNK
     Dates: start: 201206
  3. BARBITAL [Concomitant]
     Indication: BODY TEMPERATURE INCREASED
     Dosage: UNK
     Route: 030
     Dates: start: 201206
  4. CEFTRIAXONE SODIUM [Concomitant]
     Dosage: 2G WITH NS 100ML, ONCE DAILY, IVGTT
     Dates: start: 20120618
  5. VANCOMYCIN [Concomitant]
     Dosage: 1G WITH 100ML NS ONCE PER 12 HOUR, IVGTT
     Dates: start: 20120621, end: 20120621

REACTIONS (1)
  - Bone marrow failure [Recovered/Resolved]
